FAERS Safety Report 4673938-8 (Version None)
Quarter: 2005Q2

REPORT INFORMATION
  Report Type: 
  Country: None (occurrence: None)
  Receive Date: 20050524
  Receipt Date: 20050513
  Transmission Date: 20051028
  Serious: Yes (Hospitalization)
  Sender: FDA-Public Use
  Company Number: JP_031202338

PATIENT
  Age: 20 Year
  Sex: Female
  Weight: 57 kg

DRUGS (3)
  1. HUMALOG [Suspect]
     Indication: DIABETES MELLITUS INSULIN-DEPENDENT
     Dosage: 96 U DAY
     Dates: start: 20030601, end: 20031031
  2. NOVOLIN U (INSULIN ZINC SUSPENSION) [Concomitant]
  3. CAPTORIL (CAPTOPRIL) [Concomitant]

REACTIONS (6)
  - DIABETIC KETOACIDOSIS [None]
  - GLYCOGEN STORAGE DISEASE TYPE VIII [None]
  - HEPATIC FUNCTION ABNORMAL [None]
  - HEPATOCELLULAR DAMAGE [None]
  - LIVER PALPABLE SUBCOSTAL [None]
  - WHITE BLOOD CELL COUNT DECREASED [None]
